FAERS Safety Report 7364854-1 (Version None)
Quarter: 2011Q1

REPORT INFORMATION
  Report Type: 
  Country: None (occurrence: None)
  Receive Date: 20110321
  Receipt Date: 20110224
  Transmission Date: 20110831
  Serious: No
  Sender: FDA-Public Use
  Company Number: US-B.I. PHARMACEUTICALS,INC./RIDGEFIELD-2011-BP-06767BP

PATIENT
  Age: 70 Year
  Sex: Female

DRUGS (4)
  1. CHEMOMTHERAPY [Concomitant]
     Indication: LUNG NEOPLASM MALIGNANT
  2. ADVAIR DISKUS 100/50 [Concomitant]
     Indication: EMPHYSEMA
  3. SPIRIVA [Suspect]
     Indication: EMPHYSEMA
     Dosage: 18 MCG
     Route: 055
     Dates: start: 20100101, end: 20110224
  4. PROVENTIL [Concomitant]
     Indication: EMPHYSEMA

REACTIONS (5)
  - NIGHT BLINDNESS [None]
  - VISUAL IMPAIRMENT [None]
  - HALO VISION [None]
  - DYSPEPSIA [None]
  - DRY MOUTH [None]
